FAERS Safety Report 16883690 (Version 1)
Quarter: 2019Q4

REPORT INFORMATION
  Report Type: Spontaneous
  Country: CO (occurrence: CO)
  Receive Date: 20191004
  Receipt Date: 20191004
  Transmission Date: 20200122
  Serious: Yes (Other)
  Sender: FDA-Public Use
  Company Number: CO-TEVA-2019-CO-1116995

PATIENT
  Age: 17 Year

DRUGS (8)
  1. DIPYRONE [Concomitant]
     Active Substance: DIPYRONE
     Dosage: SINGLE DOSE WITH SURVEILLANCE
     Route: 042
  2. HYDROXYZINE [Concomitant]
     Active Substance: HYDROXYZINE HYDROCHLORIDE
  3. EMTHEXATE (METHOTREXATE) [Suspect]
     Active Substance: METHOTREXATE
     Dosage: TIME: 05:30?AT A SLOWER FLOW WITH PROGRESSIVE INCREASE DEPENDING ON TOLERANCE;
     Route: 065
  4. EMTHEXATE (METHOTREXATE) [Suspect]
     Active Substance: METHOTREXATE
     Dosage: FIRST PHASE: TIME: 02:30?3000 MG IN 500 SSN INTRAVENOUSLY FOR INFUSION OF 23.5 HOURS
     Route: 042
     Dates: start: 20190813
  5. SSN [Concomitant]
     Dosage: BOLUS
  6. EMTHEXATE (METHOTREXATE) [Suspect]
     Active Substance: METHOTREXATE
     Dosage: TIME: 09:50?INTRATHECAL CHEMOTHERAPY WITH METHOTREXATE 12 MG;
     Route: 065
  7. DIPYRONE [Concomitant]
     Active Substance: DIPYRONE
     Route: 065
  8. CEFEPIME [Concomitant]
     Active Substance: CEFEPIME HYDROCHLORIDE

REACTIONS (9)
  - Tremor [Unknown]
  - Dysaesthesia [Unknown]
  - Headache [Unknown]
  - Back pain [Unknown]
  - Language disorder [Unknown]
  - Neurotoxicity [Unknown]
  - Chills [Unknown]
  - Pyrexia [Unknown]
  - Demyelination [Unknown]

NARRATIVE: CASE EVENT DATE: 201908
